FAERS Safety Report 13644985 (Version 1)
Quarter: 2017Q2

REPORT INFORMATION
  Report Type: Spontaneous
  Country: US (occurrence: US)
  Receive Date: 20170612
  Receipt Date: 20170612
  Transmission Date: 20170830
  Serious: No
  Sender: FDA-Public Use
  Company Number: US-ROCHE-501452

PATIENT
  Age: 87 Year
  Sex: Male

DRUGS (8)
  1. XELODA [Suspect]
     Active Substance: CAPECITABINE
     Indication: COLON CANCER
     Route: 048
  2. NEURONTIN [Concomitant]
     Active Substance: GABAPENTIN
     Dosage: TAKING OCCASIONALLY.
     Route: 065
  3. IBUPROFEN. [Concomitant]
     Active Substance: IBUPROFEN
  4. WARFARIN [Concomitant]
     Active Substance: WARFARIN
     Route: 065
  5. UNKNOWN MEDICATION [Concomitant]
     Active Substance: UNSPECIFIED INGREDIENT
     Dosage: THE PATIENT REPORTED TAKING ^STATIN^
     Route: 065
  6. COUMADIN [Concomitant]
     Active Substance: WARFARIN SODIUM
     Dosage: DOSAGE IS TITRATED BASED ON PATIENT^S INR
     Route: 065
  7. ASPIRIN. [Concomitant]
     Active Substance: ASPIRIN
     Route: 065
  8. VITAMINS NOS [Concomitant]
     Active Substance: VITAMINS
     Dosage: TAKING ^15-20 DIFFERENT VITAMINS^
     Route: 065

REACTIONS (9)
  - Tumour marker increased [Unknown]
  - Atrial fibrillation [Unknown]
  - Cataract [Not Recovered/Not Resolved]
  - Drug effect decreased [Unknown]
  - Pain in extremity [Unknown]
  - Lacrimation increased [Not Recovered/Not Resolved]
  - Neck pain [Not Recovered/Not Resolved]
  - Neuropathy peripheral [Not Recovered/Not Resolved]
  - Eye infection [Not Recovered/Not Resolved]

NARRATIVE: CASE EVENT DATE: 20070605
